FAERS Safety Report 5080384-4 (Version None)
Quarter: 2006Q3

REPORT INFORMATION
  Report Type: 
  Country: None (occurrence: None)
  Receive Date: 20060815
  Receipt Date: 20060721
  Transmission Date: 20061208
  Serious: Yes (Hospitalization)
  Sender: FDA-Public Use
  Company Number: FR-ROCHE-456672

PATIENT
  Age: 85 Year
  Sex: Male

DRUGS (14)
  1. RIVOTRIL [Suspect]
     Indication: DRUG USE FOR UNKNOWN INDICATION
     Route: 048
  2. RIVOTRIL [Suspect]
     Dosage: REDUCED.
     Route: 048
  3. MOCLAMINE [Suspect]
     Indication: DRUG USE FOR UNKNOWN INDICATION
     Dosage: 600 MG A DAY.
     Route: 048
  4. MOCLAMINE [Suspect]
     Dosage: REDUCED.
     Route: 048
  5. BREXIN [Suspect]
     Indication: DRUG USE FOR UNKNOWN INDICATION
     Route: 048
     Dates: end: 20051028
  6. ATHYMIL [Suspect]
     Indication: DRUG USE FOR UNKNOWN INDICATION
     Route: 048
  7. ATHYMIL [Suspect]
     Dosage: REDUCED.
     Route: 048
  8. LASIX [Suspect]
     Indication: DRUG USE FOR UNKNOWN INDICATION
     Route: 048
  9. DIALGIREX [Suspect]
     Indication: DRUG USE FOR UNKNOWN INDICATION
     Route: 048
     Dates: end: 20051028
  10. OMEPRAZOLE [Concomitant]
  11. TOPALGIC [Concomitant]
  12. ASPIRIN [Concomitant]
  13. STILNOX [Concomitant]
  14. DIFFU K [Concomitant]

REACTIONS (6)
  - BLOOD SODIUM DECREASED [None]
  - HAEMOGLOBIN DECREASED [None]
  - HYPOTENSION [None]
  - IATROGENIC INJURY [None]
  - MALAISE [None]
  - RENAL FAILURE [None]
